FAERS Safety Report 5106589-1 (Version None)
Quarter: 2006Q3

REPORT INFORMATION
  Report Type: 
  Country: None (occurrence: None)
  Receive Date: 20060918
  Receipt Date: 20060607
  Transmission Date: 20061208
  Serious: Yes (Life-Threatening)
  Sender: FDA-Public Use
  Company Number: AU-ROCHE-450904

PATIENT
  Age: 72 Year
  Sex: Female
  Weight: 92 kg

DRUGS (19)
  1. CAPECITABINE [Suspect]
     Dosage: ON DAYS ONE TO FOURTEEN EVERY THREE WEEKS
     Route: 048
     Dates: start: 20060206
  2. AVASTIN [Suspect]
     Route: 042
     Dates: start: 20060206
  3. AVASTIN [Suspect]
     Route: 042
  4. PERINDOPRIL ERBUMINE [Concomitant]
     Route: 048
     Dates: start: 20060222, end: 20060421
  5. INDAPAMIDE [Concomitant]
     Route: 048
     Dates: start: 20060222, end: 20060421
  6. SPIRONOLACTONE [Concomitant]
     Route: 048
     Dates: start: 20060226, end: 20060322
  7. PAROXETINE HCL [Concomitant]
     Route: 048
     Dates: start: 20060228
  8. CLARAMAX [Concomitant]
     Route: 048
     Dates: start: 20060605
  9. ACETAMINOPHEN W/ CODEINE [Concomitant]
  10. FUROSEMIDE [Concomitant]
     Dosage: FREQUENCY REPORTED AS ^PRN^
     Route: 048
     Dates: start: 20060222
  11. CEPHALEXIN [Concomitant]
     Route: 048
     Dates: start: 20060301, end: 20060302
  12. NYSTATIN [Concomitant]
     Route: 048
     Dates: start: 20060222, end: 20060308
  13. DIFFLAM ORAL RINSE [Concomitant]
     Route: 048
     Dates: start: 20060222, end: 20060308
  14. 1 CONCOMITANT DRUG [Concomitant]
     Route: 042
     Dates: start: 20060223, end: 20060301
  15. METOCLOPRAMIDE [Concomitant]
     Dosage: FREQUENCY REPORTED AS ^PRN^.
     Route: 048
     Dates: start: 20060302, end: 20060308
  16. OXAZEPAM [Concomitant]
     Route: 048
     Dates: start: 20060223, end: 20060302
  17. DEXAMETHASONE TAB [Concomitant]
     Route: 048
     Dates: start: 20060225, end: 20060225
  18. ONDANSETRON [Concomitant]
     Dosage: FREQUENCY REPORTED AS ^PRN^.
     Route: 048
     Dates: start: 20060308, end: 20060308
  19. LOPERAMIDE [Concomitant]
     Dosage: FREQUENCY REPORTED AS ^PRN^
     Route: 048
     Dates: start: 20060306, end: 20060306

REACTIONS (2)
  - FISTULA [None]
  - SCLERODERMA RENAL CRISIS [None]
